FAERS Safety Report 6435420-7 (Version None)
Quarter: 2009Q4

REPORT INFORMATION
  Report Type: 
  Country: None (occurrence: None)
  Receive Date: 20091110
  Receipt Date: 20091103
  Transmission Date: 20100525
  Serious: Yes (Death, Life-Threatening, Disabling, Other)
  Sender: FDA-Public Use
  Company Number: US-BAXTER-2009BH013025

PATIENT
  Age: 73 Year
  Sex: Female

DRUGS (6)
  1. HEPARIN SODIUM INJECTION [Suspect]
     Indication: MITRAL VALVE REPAIR
     Route: 058
     Dates: start: 20071031, end: 20071103
  2. HEPARIN SODIUM INJECTION [Suspect]
     Indication: TRICUSPID VALVE REPAIR
     Route: 058
     Dates: start: 20071031, end: 20071103
  3. HEPARIN SODIUM INJECTION [Suspect]
     Indication: CARDIAC OPERATION
     Route: 058
     Dates: start: 20071031, end: 20071103
  4. PREVACID [Concomitant]
     Indication: DRUG USE FOR UNKNOWN INDICATION
     Route: 065
  5. PLAVIX [Concomitant]
     Indication: DRUG USE FOR UNKNOWN INDICATION
     Route: 065
  6. ATORVASTATIN [Concomitant]
     Indication: DRUG USE FOR UNKNOWN INDICATION
     Route: 065

REACTIONS (12)
  - CARDIAC ARREST [None]
  - CARDIOGENIC SHOCK [None]
  - COMA [None]
  - DEATH [None]
  - HYPOTENSION [None]
  - LEG AMPUTATION [None]
  - NAUSEA [None]
  - PARALYSIS [None]
  - RESPIRATORY FAILURE [None]
  - SWELLING [None]
  - THROMBOCYTOPENIA [None]
  - VOMITING [None]
